FAERS Safety Report 8578658-5 (Version None)
Quarter: 2012Q3

REPORT INFORMATION
  Report Type: 
  Country: None (occurrence: None)
  Receive Date: 20120808
  Receipt Date: 20120718
  Transmission Date: 20120928
  Serious: No
  Sender: FDA-Public Use
  Company Number: US-ASTRAZENECA-2012SE43777

PATIENT
  Age: 67 Year
  Sex: Female

DRUGS (3)
  1. ATROVENT [Suspect]
  2. GLYOXIDE [Concomitant]
     Indication: APHTHOUS STOMATITIS
  3. SYMBICORT [Suspect]
     Route: 055

REACTIONS (4)
  - APHTHOUS STOMATITIS [None]
  - HALO VISION [None]
  - STRESS [None]
  - ADVERSE EVENT [None]
